FAERS Safety Report 7935769-2 (Version None)
Quarter: 2011Q4

REPORT INFORMATION
  Report Type: 
  Country: None (occurrence: None)
  Receive Date: 20111123
  Receipt Date: 20111117
  Transmission Date: 20120403
  Serious: Yes (Hospitalization, Other)
  Sender: FDA-Public Use
  Company Number: PHHY2011BE94847

PATIENT
  Sex: Female

DRUGS (3)
  1. ONBREZ [Suspect]
     Indication: ASTHMA
  2. ONBREZ [Suspect]
     Indication: CHRONIC OBSTRUCTIVE PULMONARY DISEASE
     Dosage: 15 UG, QD
     Dates: start: 20110929
  3. ONBREZ [Suspect]
     Indication: RESPIRATORY DISORDER

REACTIONS (2)
  - RESPIRATORY TRACT INFECTION [None]
  - ASTHMA [None]
